FAERS Safety Report 10366263 (Version 2)
Quarter: 2015Q1

REPORT INFORMATION
  Report Type: Spontaneous
  Country: US (occurrence: US)
  Receive Date: 20140806
  Receipt Date: 20150302
  Transmission Date: 20150720
  Serious: Yes (Hospitalization, Disabling, Other)
  Sender: FDA-Public Use
  Company Number: US-ACTAVIS-2014-16676

PATIENT
  Age: 32 Year
  Sex: Male
  Weight: 97 kg

DRUGS (2)
  1. ASACOL [Suspect]
     Active Substance: MESALAMINE
     Indication: PRODUCT USED FOR UNKNOWN INDICATION
     Dosage: UNK, BID
     Route: 065
  2. PREDNISONE (WATSON LABORATORIES) [Suspect]
     Active Substance: PREDNISONE
     Indication: COLITIS ULCERATIVE
     Dosage: 20 MG BID
     Route: 065
     Dates: start: 2002, end: 2002

REACTIONS (8)
  - Hip surgery [Unknown]
  - Weight decreased [Unknown]
  - Disability [Not Recovered/Not Resolved]
  - Haematochezia [Unknown]
  - Osteonecrosis [Not Recovered/Not Resolved]
  - Epicondylitis [Not Recovered/Not Resolved]
  - Hip arthroplasty [Unknown]
  - Joint dislocation [Unknown]

NARRATIVE: CASE EVENT DATE: 2002
